FAERS Safety Report 8200377-5 (Version None)
Quarter: 2012Q1

REPORT INFORMATION
  Report Type: 
  Country: None (occurrence: None)
  Receive Date: 20120306
  Receipt Date: 20120221
  Transmission Date: 20120608
  Serious: Yes (Other)
  Sender: FDA-Public Use
  Company Number: RISP20120003

PATIENT
  Age: 52 Year
  Sex: Male

DRUGS (1)
  1. RISPERIDONE [Suspect]
     Indication: SCHIZOPHRENIA
     Dosage: 4 MG, 2 IN 1 D, ORAL
     Route: 048
     Dates: start: 20010101, end: 20100101

REACTIONS (12)
  - HYPERPROLACTINAEMIA [None]
  - GRANULOMA [None]
  - SCAR [None]
  - SKIN ULCER [None]
  - SUBCUTANEOUS ABSCESS [None]
  - SKIN GRAFT [None]
  - FOREIGN BODY REACTION [None]
  - BLOODY DISCHARGE [None]
  - PAIN [None]
  - SKIN MASS [None]
  - GYNAECOMASTIA [None]
  - SKIN LESION [None]
